FAERS Safety Report 17721756 (Version 2)
Quarter: 2020Q2

REPORT INFORMATION
  Report Type: Report from Study
  Country: None (occurrence: US)
  Receive Date: 20200429
  Receipt Date: 20200604
  Transmission Date: 20200714
  Serious: Yes (Hospitalization)
  Sender: FDA-Public Use
  Company Number: US-ABBVIE-20K-163-3375297-00

PATIENT
  Age: 60 Year
  Sex: Female
  Weight: 88.98 kg

DRUGS (3)
  1. LISINOPRIL. [Concomitant]
     Active Substance: LISINOPRIL
     Indication: HYPERTENSION
  2. HUMIRA [Suspect]
     Active Substance: ADALIMUMAB
     Indication: PSORIATIC ARTHROPATHY
     Dosage: CITRATE FREE
     Route: 058
     Dates: start: 20180421
  3. HUMIRA [Suspect]
     Active Substance: ADALIMUMAB
     Indication: PSORIASIS

REACTIONS (14)
  - Food intolerance [Unknown]
  - Impaired gastric emptying [Recovering/Resolving]
  - Abdominal discomfort [Unknown]
  - Asthma [Not Recovered/Not Resolved]
  - Immunodeficiency [Not Recovered/Not Resolved]
  - Sleep apnoea syndrome [Unknown]
  - Injection site haemorrhage [Unknown]
  - Abdominal pain upper [Unknown]
  - Protein urine present [Not Recovered/Not Resolved]
  - Adverse food reaction [Unknown]
  - Hospitalisation [Unknown]
  - Psoriasis [Not Recovered/Not Resolved]
  - Injection site pain [Recovered/Resolved]
  - Autoimmune disorder [Not Recovered/Not Resolved]

NARRATIVE: CASE EVENT DATE: 20190813
